FAERS Safety Report 7306316-3 (Version None)
Quarter: 2011Q1

REPORT INFORMATION
  Report Type: 
  Country: None (occurrence: None)
  Receive Date: 20110210
  Receipt Date: 20110201
  Transmission Date: 20110831
  Serious: Yes (Hospitalization)
  Sender: FDA-Public Use
  Company Number: TCI2011A00598

PATIENT
  Age: 75 Year
  Sex: Female

DRUGS (3)
  1. TAKEPRON (LANSOPRAZOLE) [Suspect]
  2. WARFARIN POTASSIUM [Suspect]
     Dosage: PER ORAL
     Route: 048
  3. ZANTAC [Concomitant]

REACTIONS (3)
  - INTERNATIONAL NORMALISED RATIO INCREASED [None]
  - DRUG INTERACTION [None]
  - GASTROINTESTINAL HAEMORRHAGE [None]
